FAERS Safety Report 5324131-7 (Version None)
Quarter: 2007Q2

REPORT INFORMATION
  Report Type: 
  Country: None (occurrence: None)
  Receive Date: 20070514
  Receipt Date: 20060911
  Transmission Date: 20071010
  Serious: No
  Sender: FDA-Public Use
  Company Number: A0619764A

PATIENT
  Age: 46 Year
  Sex: Male

DRUGS (1)
  1. RELAFEN [Suspect]
     Indication: BACK PAIN
     Route: 048

REACTIONS (1)
  - COELIAC DISEASE [None]
